FAERS Safety Report 8122652-5 (Version None)
Quarter: 2012Q1

REPORT INFORMATION
  Report Type: 
  Country: None (occurrence: None)
  Receive Date: 20120208
  Receipt Date: 20120127
  Transmission Date: 20120608
  Serious: Yes (Hospitalization)
  Sender: FDA-Public Use
  Company Number: US-BIOGENIDEC-2011BI038774

PATIENT
  Age: 52 Year
  Sex: Male

DRUGS (3)
  1. AVONEX [Concomitant]
     Indication: MULTIPLE SCLEROSIS
     Route: 030
  2. TYSABRI [Suspect]
     Indication: MULTIPLE SCLEROSIS
     Route: 042
     Dates: start: 20070327, end: 20100903
  3. TYSABRI [Suspect]
     Route: 042
     Dates: start: 20110111, end: 20110902

REACTIONS (2)
  - CLOSTRIDIAL INFECTION [None]
  - ASTHENIA [None]
